FAERS Safety Report 25647865 (Version 1)
Quarter: 2025Q3

REPORT INFORMATION
  Report Type: Report from Study
  Country: US (occurrence: US)
  Receive Date: 20250806
  Receipt Date: 20250806
  Transmission Date: 20251021
  Serious: Yes (Hospitalization)
  Sender: ABBVIE
  Company Number: US-ABBVIE-6402121

PATIENT
  Age: 71 Year
  Sex: Female

DRUGS (1)
  1. SYNTHROID [Suspect]
     Active Substance: LEVOTHYROXINE SODIUM
     Indication: Hypothyroidism
     Route: 048

REACTIONS (7)
  - Illness [Unknown]
  - Fall [Unknown]
  - Osteoporosis [Unknown]
  - Thyroid hormones decreased [Unknown]
  - Drug ineffective [Not Recovered/Not Resolved]
  - Shoulder fracture [Unknown]
  - Blood test abnormal [Unknown]

NARRATIVE: CASE EVENT DATE: 20250301
